FAERS Safety Report 5414930-5 (Version None)
Quarter: 2007Q3

REPORT INFORMATION
  Report Type: 
  Country: None (occurrence: None)
  Receive Date: 20070813
  Receipt Date: 20070726
  Transmission Date: 20080115
  Serious: Yes (Death)
  Sender: FDA-Public Use
  Company Number: 159275ISR

PATIENT
  Age: 32 Year
  Sex: Male

DRUGS (2)
  1. ETOPOSIDE [Suspect]
     Indication: HODGKIN'S DISEASE
     Dosage: ORAL
     Route: 048
  2. LOMUSTINE [Suspect]
     Indication: HODGKIN'S DISEASE
     Dosage: 200 MG (40 MG, 5 IN 1 D) ORAL
     Route: 048

REACTIONS (3)
  - ACCIDENTAL OVERDOSE [None]
  - DRUG DISPENSING ERROR [None]
  - MULTI-ORGAN FAILURE [None]
